FAERS Safety Report 4666819-7 (Version None)
Quarter: 2005Q2

REPORT INFORMATION
  Report Type: 
  Country: None (occurrence: None)
  Receive Date: 20050518
  Receipt Date: 20050125
  Transmission Date: 20051028
  Serious: Yes (Other)
  Sender: FDA-Public Use
  Company Number: 2005020454

PATIENT
  Age: 21 Year
  Sex: Female
  Weight: 71.6683 kg

DRUGS (2)
  1. DEPO-PROVERA [Suspect]
     Indication: CONTRACEPTION
     Dosage: 150 MG( 150 MG,1ST INJ ) IM, 150MG ( 150 MG,LAST INJ ) IM
     Route: 030
     Dates: start: 19991201, end: 19991201
  2. DEPO-PROVERA [Suspect]
     Indication: CONTRACEPTION
     Dosage: 150 MG( 150 MG,1ST INJ ) IM, 150MG ( 150 MG,LAST INJ ) IM
     Route: 030
     Dates: start: 20041022, end: 20041022

REACTIONS (2)
  - OSTEOPENIA [None]
  - OSTEOPOROSIS [None]
